FAERS Safety Report 25162548 (Version 1)
Quarter: 2025Q2

REPORT INFORMATION
  Report Type: Spontaneous
  Country: US (occurrence: US)
  Receive Date: 20250404
  Receipt Date: 20250404
  Transmission Date: 20250717
  Serious: No
  Sender: BAUSCH AND LOMB
  Company Number: US-BAUSCHBL-2025BNL005378

PATIENT
  Sex: Female

DRUGS (2)
  1. MIEBO [Suspect]
     Active Substance: PERFLUOROHEXYLOCTANE
     Indication: Dry eye
     Dosage: PATIENT USED SUSPECT TWICE IN FIRST DAY
     Route: 047
  2. MIEBO [Suspect]
     Active Substance: PERFLUOROHEXYLOCTANE
     Dosage: ON THE SECOND AND THIRD PATIENT USED IT 3 TIMES PER DAY
     Route: 047

REACTIONS (3)
  - Eye irritation [Unknown]
  - Patient dissatisfaction with treatment [Unknown]
  - Product prescribing issue [Unknown]
